FAERS Safety Report 6987712-0 (Version None)
Quarter: 2010Q3

REPORT INFORMATION
  Report Type: 
  Country: None (occurrence: None)
  Receive Date: 20100916
  Receipt Date: 20100804
  Transmission Date: 20110219
  Serious: Yes (Death, Hospitalization, Other)
  Sender: FDA-Public Use
  Company Number: US-BAXTER-2008BH009981

PATIENT
  Age: 83 Year
  Sex: Male

DRUGS (28)
  1. HEPARIN SODIUM INJECTION [Suspect]
     Indication: ATRIAL FIBRILLATION
     Route: 058
     Dates: start: 20080118, end: 20080118
  2. HEPARIN SODIUM INJECTION [Suspect]
     Indication: THROMBOSIS PROPHYLAXIS
     Route: 058
     Dates: start: 20080118, end: 20080118
  3. HEPARIN SODIUM INJECTION [Suspect]
     Route: 042
     Dates: start: 20080119, end: 20080119
  4. HEPARIN SODIUM INJECTION [Suspect]
     Route: 042
     Dates: start: 20080119, end: 20080119
  5. HEPARIN SODIUM INJECTION [Suspect]
     Route: 042
     Dates: start: 20080118, end: 20080121
  6. HEPARIN SODIUM INJECTION [Suspect]
     Route: 042
     Dates: start: 20080118, end: 20080121
  7. HEPARIN SODIUM INJECTION [Suspect]
     Route: 042
     Dates: start: 20080124, end: 20080124
  8. HEPARIN SODIUM INJECTION [Suspect]
     Route: 042
     Dates: start: 20080124, end: 20080124
  9. HEPARIN SODIUM INJECTION [Suspect]
     Route: 042
     Dates: start: 20080128, end: 20080128
  10. HEPARIN SODIUM INJECTION [Suspect]
     Route: 042
     Dates: start: 20080128, end: 20080128
  11. HEPARIN SODIUM INJECTION [Suspect]
     Route: 058
     Dates: start: 20080202, end: 20080208
  12. HEPARIN SODIUM INJECTION [Suspect]
     Route: 058
     Dates: start: 20080202, end: 20080208
  13. HEPARIN SODIUM INJECTION [Suspect]
     Route: 040
     Dates: start: 20080118, end: 20080118
  14. HEPARIN SODIUM INJECTION [Suspect]
     Route: 040
     Dates: start: 20080118, end: 20080118
  15. HEPARIN SODIUM 1,000 UNITS AND SODIUM CHLORIDE 0.9% [Suspect]
     Indication: ATRIAL FIBRILLATION
     Route: 042
     Dates: start: 20080119, end: 20080124
  16. HEPARIN SODIUM 1,000 UNITS AND SODIUM CHLORIDE 0.9% [Suspect]
     Route: 041
     Dates: start: 20080101, end: 20080122
  17. HEPARIN SODIUM 1,000 UNITS AND SODIUM CHLORIDE 0.9% [Suspect]
     Route: 041
     Dates: start: 20080124
  18. ASPIRIN [Concomitant]
     Indication: PRODUCT USED FOR UNKNOWN INDICATION
     Route: 048
  19. SYNTHROID [Concomitant]
     Indication: PRODUCT USED FOR UNKNOWN INDICATION
     Route: 048
  20. NEXIUM [Concomitant]
     Indication: PRODUCT USED FOR UNKNOWN INDICATION
     Route: 048
  21. ACCUPRIL [Concomitant]
     Indication: PRODUCT USED FOR UNKNOWN INDICATION
     Route: 065
  22. NITROGLYCERIN [Concomitant]
     Indication: PRODUCT USED FOR UNKNOWN INDICATION
     Route: 061
  23. LASIX [Concomitant]
     Indication: PRODUCT USED FOR UNKNOWN INDICATION
     Route: 048
  24. COREG [Concomitant]
     Indication: PRODUCT USED FOR UNKNOWN INDICATION
     Route: 048
  25. AVELOX [Concomitant]
     Indication: PRODUCT USED FOR UNKNOWN INDICATION
     Route: 042
  26. NPH INSULIN [Concomitant]
     Indication: PRODUCT USED FOR UNKNOWN INDICATION
     Route: 058
  27. NOVOLOG [Concomitant]
     Indication: PRODUCT USED FOR UNKNOWN INDICATION
     Route: 058
  28. WARFARIN SODIUM [Concomitant]
     Indication: ATRIAL FIBRILLATION
     Route: 048

REACTIONS (16)
  - ASCITES [None]
  - CARDIAC FAILURE CHRONIC [None]
  - CHOLELITHIASIS [None]
  - DEATH [None]
  - EXTRASYSTOLES [None]
  - HAEMATURIA [None]
  - HAEMORRHAGE [None]
  - HYPERNATRAEMIA [None]
  - HYPOKALAEMIA [None]
  - MENTAL STATUS CHANGES [None]
  - METABOLIC ACIDOSIS [None]
  - PALLOR [None]
  - RENAL CYST [None]
  - SEPTIC SHOCK [None]
  - SKIN DISORDER [None]
  - THROMBOSIS [None]
